FAERS Safety Report 4923520-X (Version None)
Quarter: 2006Q1

REPORT INFORMATION
  Report Type: 
  Country: None (occurrence: None)
  Receive Date: 20060227
  Receipt Date: 20060130
  Transmission Date: 20060701
  Serious: Yes (Hospitalization)
  Sender: FDA-Public Use
  Company Number: 2006AP00530

PATIENT
  Age: 62 Year
  Sex: Male
  Weight: 85 kg

DRUGS (6)
  1. MEROPEN [Suspect]
     Indication: PYELONEPHRITIS
     Route: 041
     Dates: start: 20051012, end: 20051015
  2. CEFAMEZINE [Suspect]
     Indication: INFECTION PROPHYLAXIS
     Route: 041
     Dates: start: 20051011, end: 20051012
  3. GASTER [Suspect]
     Indication: PROPHYLAXIS AGAINST GASTROINTESTINAL ULCER
     Route: 041
     Dates: start: 20051012, end: 20051102
  4. PANTHOL [Concomitant]
     Indication: GASTROINTESTINAL MOTILITY DISORDER
     Route: 041
     Dates: start: 20051012, end: 20051018
  5. PURINPERAN [Concomitant]
     Indication: PROPHYLAXIS OF NAUSEA AND VOMITING
     Route: 041
     Dates: start: 20051012, end: 20051018
  6. ADONA [Concomitant]
     Indication: PROPHYLAXIS
     Route: 041
     Dates: start: 20051012, end: 20051022

REACTIONS (13)
  - BACTERIAL INFECTION [None]
  - COAGULATION TEST ABNORMAL [None]
  - CONDITION AGGRAVATED [None]
  - DRUG INEFFECTIVE [None]
  - ENDOTOXIC SHOCK [None]
  - FUNGAL INFECTION [None]
  - HEPATOCELLULAR DAMAGE [None]
  - LIVER DISORDER [None]
  - NOSOCOMIAL INFECTION [None]
  - PLATELET COUNT DECREASED [None]
  - RASH ERYTHEMATOUS [None]
  - RESPIRATORY DISORDER [None]
  - SEPTIC SHOCK [None]
